FAERS Safety Report 12204138 (Version 2)
Quarter: 2016Q2

REPORT INFORMATION
  Report Type: Spontaneous
  Country: US (occurrence: US)
  Receive Date: 20160323
  Receipt Date: 20160608
  Transmission Date: 20160815
  Serious: Yes (Hospitalization, Other)
  Sender: FDA-Public Use
  Company Number: US-PFIZER INC-2016171167

PATIENT
  Age: 53 Year
  Sex: Male

DRUGS (11)
  1. TESTOSTERONE ENANTHATE. [Suspect]
     Active Substance: TESTOSTERONE ENANTHATE
     Indication: HORMONE REPLACEMENT THERAPY
     Dosage: 200 MG, EVERY 2 WEEKS (200 MG/ML)
     Dates: start: 20090423, end: 20100128
  2. HYDROCORTISONE. [Concomitant]
     Active Substance: HYDROCORTISONE
     Indication: PITUITARY TUMOUR
     Dosage: UNK
     Dates: start: 2008
  3. LEVOTHYROXINE. [Concomitant]
     Active Substance: LEVOTHYROXINE
     Indication: PITUITARY TUMOUR
     Dosage: UNK
     Dates: start: 2008
  4. FLUPHENAZINE [Concomitant]
     Active Substance: FLUPHENAZINE
     Indication: SCHIZOPHRENIA
     Dosage: UNK
     Dates: start: 1978
  5. DEPO-TESTOSTERONE [Suspect]
     Active Substance: TESTOSTERONE CYPIONATE
     Indication: HORMONE REPLACEMENT THERAPY
     Dosage: 200 MG, EVERY 2 WEEKS (200 MG/ML)
     Dates: start: 20100305, end: 20120925
  6. DEPO-TESTOSTERONE [Suspect]
     Active Substance: TESTOSTERONE CYPIONATE
     Dosage: 100 MG, EVERY 2 WEEKS (200 MG/ML)
     Dates: start: 20120925
  7. ANDRODERM [Suspect]
     Active Substance: TESTOSTERONE
     Indication: HORMONE REPLACEMENT THERAPY
     Dosage: 5 MG (5MG/24 HRS ONE PATCH), DAILY
     Dates: start: 20080327, end: 20080409
  8. ANDRODERM [Suspect]
     Active Substance: TESTOSTERONE
     Dosage: 10 MG (5 MG/24 HRS TWO PATCHES), DAILY
     Dates: start: 20080409, end: 20080429
  9. TESTIM [Suspect]
     Active Substance: TESTOSTERONE
     Indication: HORMONE REPLACEMENT THERAPY
     Dosage: 1 DF (ONE PACKET), DAILY
     Dates: start: 20080429, end: 20081220
  10. CHOLECALCIFEROL [Concomitant]
     Active Substance: CHOLECALCIFEROL
     Indication: PITUITARY TUMOUR
     Dosage: UNK
     Dates: start: 2008
  11. MULTI-VITAMIN [Concomitant]
     Active Substance: .ALPHA.-TOCOPHEROL ACETATE, DL-\ASCORBIC ACID\CYANOCOBALAMIN\FLUORIDE ION\FOLIC ACID\NIACIN\PYRIDOXINE\RIBOFLAVIN\THIAMINE\VITAMIN A\VITAMIN D
     Indication: ROUTINE HEALTH MAINTENANCE
     Dosage: UNK
     Dates: start: 2010

REACTIONS (3)
  - General physical health deterioration [Not Recovered/Not Resolved]
  - Myocardial infarction [Unknown]
  - Decreased activity [Not Recovered/Not Resolved]

NARRATIVE: CASE EVENT DATE: 20120919
